FAERS Safety Report 6885326-4 (Version None)
Quarter: 2010Q3

REPORT INFORMATION
  Report Type: 
  Country: None (occurrence: None)
  Receive Date: 20100729
  Receipt Date: 20100729
  Transmission Date: 20110219
  Serious: Yes (Other)
  Sender: FDA-Public Use
  Company Number: None

PATIENT
  Age: 41 Year
  Sex: Female
  Weight: 71.2147 kg

DRUGS (2)
  1. ROPINIROLE [Suspect]
     Indication: RESTLESS LEGS SYNDROME
     Dosage: 1 TABLET AT BEDTIME PO
     Route: 048
     Dates: start: 20100727, end: 20100727
  2. LEXAPRO [Concomitant]

REACTIONS (14)
  - ASTHENIA [None]
  - CHILLS [None]
  - DIZZINESS [None]
  - DYSSTASIA [None]
  - FEAR [None]
  - FEELING ABNORMAL [None]
  - FEELING OF BODY TEMPERATURE CHANGE [None]
  - HEADACHE [None]
  - HYPERHIDROSIS [None]
  - NAUSEA [None]
  - PARAESTHESIA [None]
  - SKIN DISCOLOURATION [None]
  - SOMNOLENCE [None]
  - VOMITING [None]
